FAERS Safety Report 15014394 (Version 2)
Quarter: 2018Q2

REPORT INFORMATION
  Report Type: Spontaneous
  Country: US (occurrence: US)
  Receive Date: 20180615
  Receipt Date: 20180618
  Transmission Date: 20180711
  Serious: Yes (Other)
  Sender: FDA-Public Use
  Company Number: US-B.I. PHARMACEUTICALS,INC./RIDGEFIELD-2018-BI-030213

PATIENT
  Age: 60 Year
  Sex: Female

DRUGS (3)
  1. GILOTRIF [Suspect]
     Active Substance: AFATINIB
     Route: 065
  2. GILOTRIF [Suspect]
     Active Substance: AFATINIB
     Route: 065
     Dates: end: 20171101
  3. GILOTRIF [Suspect]
     Active Substance: AFATINIB
     Indication: NON-SMALL CELL LUNG CANCER METASTATIC
     Dosage: ACTION(S) TAKEN WITH PRODUCT: DRUG WITHDRAWN
     Route: 065
     Dates: start: 20170429

REACTIONS (6)
  - Diarrhoea [Unknown]
  - Cerebral disorder [Unknown]
  - Dehydration [Unknown]
  - Therapeutic response unexpected [Unknown]
  - Lymphadenopathy [Unknown]
  - Chest wall mass [Unknown]

NARRATIVE: CASE EVENT DATE: 201704
